FAERS Safety Report 8971666 (Version 3)
Quarter: 2013Q1

REPORT INFORMATION
  Report Type: Spontaneous
  Country: US (occurrence: US)
  Receive Date: 20121217
  Receipt Date: 20130226
  Transmission Date: 20140127
  Serious: Yes (Hospitalization)
  Sender: FDA-Public Use
  Company Number: US-UCBSA-072899

PATIENT
  Age: 63 Year
  Sex: Female
  Weight: 66.9 kg

DRUGS (44)
  1. ZAROXOLYN [Suspect]
     Indication: POLYURIA
     Dosage: 0.7143 MG(2.5 MG)
     Dates: start: 20060131
  2. REVATIO [Suspect]
     Indication: PULMONARY ARTERIAL HYPERTENSION
     Dates: start: 20060209, end: 20120808
  3. DEMADEX [Suspect]
     Indication: POLYURIA
     Route: 048
     Dates: start: 20071115
  4. ACARBOSE [Concomitant]
     Indication: DIABETES MELLITUS
     Route: 048
     Dates: start: 20080204, end: 20120619
  5. PARACETAMOL [Concomitant]
     Indication: MIGRAINE
     Dosage: OTC
     Route: 048
     Dates: start: 20080220
  6. PARACETAMOL [Concomitant]
     Indication: PAIN
     Dosage: OTC
     Route: 048
     Dates: start: 20080220
  7. ALLOPURINOL [Concomitant]
     Indication: GOUT
     Dosage: BED TIME (QHS)
     Route: 048
     Dates: start: 20060131, end: 20111220
  8. BACLOFEN [Concomitant]
     Indication: CONSTIPATION
     Route: 048
     Dates: start: 20080204
  9. CALCIUM W/MAGNESIUM [Concomitant]
     Indication: OSTEOPOROSIS PROPHYLAXIS
     Route: 048
     Dates: start: 20070108
  10. CLONAZEPAM [Concomitant]
     Indication: ANXIETY
     Route: 048
     Dates: start: 20091116
  11. CELECOXIB [Concomitant]
     Indication: PAIN
     Route: 048
     Dates: start: 20060131
  12. CLOPIDOGREL [Concomitant]
     Indication: CORONARY ARTERY DISEASE
     Route: 048
     Dates: start: 20060131, end: 20120619
  13. CYANOCOBALAMIN [Concomitant]
     Indication: ANAEMIA
     Route: 030
     Dates: start: 20060131
  14. CYCLOSPORINE OPHTH [Concomitant]
     Indication: DRY EYE
     Route: 047
     Dates: start: 20110418
  15. DICLOFENAC [Concomitant]
     Indication: PAIN
     Route: 061
     Dates: start: 20081229
  16. DOMPERIDONE [Concomitant]
     Route: 048
     Dates: start: 20110418
  17. DOXYCYCLINE [Concomitant]
     Dosage: 20 MG BID AS REQUIRED
     Route: 048
     Dates: start: 20110310, end: 20111220
  18. DULOXETINE [Concomitant]
     Indication: DEPRESSION
     Dosage: 60
     Route: 048
     Dates: start: 20070524
  19. DULOXETINE [Concomitant]
     Indication: ANXIETY
     Dosage: 60
     Route: 048
     Dates: start: 20070524
  20. ESOMEPRAZOLE [Concomitant]
     Indication: GASTROOESOPHAGEAL REFLUX DISEASE
     Route: 048
     Dates: start: 20060309
  21. CYCLOGESTERIN [Concomitant]
     Indication: POSTMENOPAUSE
     Dosage: 0.3 MG - 1.5 MG
     Route: 048
     Dates: start: 20080225
  22. EZETIMIBE [Concomitant]
     Indication: OBESITY
     Dosage: 10 MG
     Route: 048
     Dates: start: 20060131
  23. FENOFIBRATE [Concomitant]
     Indication: HYPERCHOLESTEROLAEMIA
     Route: 048
     Dates: start: 20100421
  24. FEXOFENADINE [Concomitant]
     Indication: RHINITIS
     Route: 048
     Dates: start: 20090209
  25. FENTANYL [Concomitant]
     Indication: PAIN
     Route: 062
     Dates: start: 20060131
  26. HYDROMORPHONE [Concomitant]
     Indication: PAIN
     Dosage: EVERY 4-6 HOURS
     Route: 048
     Dates: start: 20091116
  27. INSULIN DETEMIR [Concomitant]
     Indication: TYPE 2 DIABETES MELLITUS
     Dosage: 50 UNITS
     Route: 058
     Dates: start: 20080204
  28. IPRATROPIUM [Concomitant]
     Indication: RHINITIS
     Dosage: 2 SPRAYS, AS REQUIRED
     Route: 045
     Dates: start: 20060131
  29. LIDOCAINE [Concomitant]
     Indication: PAIN
     Route: 061
     Dates: start: 20080220
  30. LIPITOR [Concomitant]
     Indication: CORONARY ARTERY DISEASE
     Route: 048
     Dates: start: 20060131
  31. LUNESTA [Concomitant]
     Indication: SLEEP DISORDER
     Dates: start: 20070108, end: 20120112
  32. MODAFINIL [Concomitant]
     Indication: SLEEP DISORDER
     Route: 048
     Dates: start: 20071115
  33. MULTIVITAMIN [Concomitant]
     Indication: VITAMIN SUPPLEMENTATION
     Route: 048
     Dates: start: 20080225
  34. OMEGA 3 FATTY ACIDS [Concomitant]
     Indication: CORONARY ARTERY DISEASE
     Route: 048
     Dates: start: 20110204
  35. FORTAGESIC [Concomitant]
     Indication: PAIN
     Dosage: 25 MG/650 MG EVERY 6 HOURS
     Route: 048
     Dates: start: 20080220, end: 20120112
  36. MACROGOL [Concomitant]
     Indication: CONSTIPATION
     Route: 048
     Dates: start: 20060131
  37. PROTOPIC [Concomitant]
     Route: 061
     Dates: start: 20060223
  38. SITAGLIPTIN [Concomitant]
     Indication: TYPE 2 DIABETES MELLITUS
     Route: 048
     Dates: start: 20080225
  39. SURFAK [Concomitant]
     Indication: ABNORMAL FAECES
     Route: 048
     Dates: start: 20060131
  40. URSODIOL [Concomitant]
     Indication: PROPHYLAXIS
     Route: 048
     Dates: start: 20060131
  41. L-ARGENINE [Concomitant]
     Route: 048
  42. L-MFOLATE-B6 PHOS-MRTHYL-B-12 [Concomitant]
     Indication: ANAEMIA
     Dosage: 2.8 MG/2 MG/25 MG
     Route: 048
  43. POTASSIUM BICARBONATE AND CHLORIDE [Concomitant]
     Indication: FLUID REPLACEMENT
     Dosage: 25 MEQ BID
     Route: 048
  44. POTASSIUM BICARBONATE AND CHLORIDE [Concomitant]
     Indication: ELECTROLYTE SUBSTITUTION THERAPY
     Dosage: 25 MEQ BID
     Route: 048

REACTIONS (1)
  - Pulmonary arterial hypertension [Recovered/Resolved]
